FAERS Safety Report 6172051-0 (Version None)
Quarter: 2009Q2

REPORT INFORMATION
  Report Type: 
  Country: None (occurrence: None)
  Receive Date: 20090429
  Receipt Date: 20090424
  Transmission Date: 20091009
  Serious: Yes (Other)
  Sender: FDA-Public Use
  Company Number: US-PFIZER INC-2006087857

PATIENT
  Sex: Female

DRUGS (11)
  1. PROVERA [Suspect]
     Indication: HORMONE REPLACEMENT THERAPY
     Dosage: UNK
     Route: 048
     Dates: start: 19830101, end: 20001201
  2. PREMARIN [Suspect]
     Indication: HORMONE REPLACEMENT THERAPY
     Dosage: UNK
     Dates: start: 19830101, end: 19980917
  3. ESTRACE [Suspect]
     Indication: HORMONE REPLACEMENT THERAPY
     Dosage: UNK
     Dates: start: 19980929, end: 19990901
  4. ESTRATEST [Suspect]
     Indication: HORMONE REPLACEMENT THERAPY
     Dosage: UNK
     Dates: start: 19991025, end: 20001201
  5. PREMPRO [Suspect]
     Indication: HORMONE REPLACEMENT THERAPY
     Dosage: UNK
     Dates: start: 20000101, end: 20010101
  6. VERAPAMIL [Concomitant]
     Indication: CARDIAC DISORDER
     Dosage: 240 MG, UNK
     Dates: start: 19980101
  7. DIGOXIN [Concomitant]
     Indication: CARDIAC DISORDER
     Dosage: 0.25 MG, UNK
     Dates: start: 19980101
  8. METOPROLOL [Concomitant]
     Indication: CARDIAC DISORDER
     Dosage: 5 MG, UNK
     Dates: start: 19980101
  9. EVISTA [Concomitant]
     Indication: OSTEOPOROSIS
     Dosage: UNK
     Dates: start: 20000101
  10. EFFEXOR [Concomitant]
     Indication: DEPRESSION
     Dosage: UNK
     Dates: start: 19910101
  11. BUSPAR [Concomitant]
     Indication: DEPRESSION
     Dosage: UNK
     Dates: start: 19910101

REACTIONS (1)
  - BREAST CANCER [None]
